FAERS Safety Report 10727919 (Version 1)
Quarter: 2015Q1

REPORT INFORMATION
  Report Type: Spontaneous
  Country: JP (occurrence: JP)
  Receive Date: 20150121
  Receipt Date: 20150121
  Transmission Date: 20150721
  Serious: Yes (Other)
  Sender: FDA-Public Use
  Company Number: JP-TAKEDA-TPA2011A08164

PATIENT
  Age: 58 Year
  Sex: Male
  Weight: 57 kg

DRUGS (13)
  1. CALTAN [Concomitant]
     Active Substance: CALCIUM CARBONATE
     Indication: HYPERPHOSPHATAEMIA
     Dosage: 500 MG, TID
     Route: 048
     Dates: start: 20111107
  2. KAYEXALATE [Concomitant]
     Active Substance: SODIUM POLYSTYRENE SULFONATE
     Indication: HYPERKALAEMIA
     Dosage: 1 DF, QD
     Route: 048
     Dates: start: 20111117
  3. FEBURIC [Suspect]
     Active Substance: FEBUXOSTAT
     Indication: HYPERURICAEMIA
     Dosage: 10 MG, QD
     Route: 048
     Dates: start: 20111117, end: 20111118
  4. NU-LOTAN [Concomitant]
     Active Substance: LOSARTAN POTASSIUM
     Indication: HYPERTENSION
     Dosage: 100 MG, QD
     Route: 048
     Dates: start: 20061018
  5. DIPYRIDAMOLE. [Concomitant]
     Active Substance: DIPYRIDAMOLE
     Dosage: UNK
     Route: 065
  6. INSULIN ASPART [Concomitant]
     Active Substance: INSULIN ASPART
     Dosage: 6U/DAY
     Route: 065
  7. CILNIDIPINE [Concomitant]
     Active Substance: CILNIDIPINE
     Route: 048
  8. ALOSITOL [Concomitant]
     Active Substance: ALLOPURINOL
     Indication: HYPERURICAEMIA
     Dosage: 100 MG, UNK
     Route: 048
     Dates: start: 20081027, end: 20111116
  9. HYDROCHLOROTHIAZIDE. [Concomitant]
     Active Substance: HYDROCHLOROTHIAZIDE
     Dosage: UNK
     Route: 048
  10. SHAKUYAKUKANZOTO [Concomitant]
     Active Substance: HERBALS
     Route: 048
  11. ROCALTROL [Concomitant]
     Active Substance: CALCITRIOL
     Indication: CHRONIC KIDNEY DISEASE
  12. ROCALTROL [Concomitant]
     Active Substance: CALCITRIOL
     Indication: CHRONIC KIDNEY DISEASE
     Dosage: 0.5 ?G, QD
     Route: 048
     Dates: start: 20110704
  13. DIART [Concomitant]
     Active Substance: AZOSEMIDE
     Indication: OEDEMA DUE TO RENAL DISEASE
     Dosage: 60 MG, BID
     Route: 048
     Dates: start: 20080818

REACTIONS (3)
  - Hyperkalaemia [Recovered/Resolved]
  - Hepatic function abnormal [Recovered/Resolved]
  - Hyperphosphataemia [Recovered/Resolved]

NARRATIVE: CASE EVENT DATE: 20111117
